FAERS Safety Report 21298579 (Version 1)
Quarter: 2022Q3

REPORT INFORMATION
  Report Type: Spontaneous
  Country: US (occurrence: US)
  Receive Date: 20220906
  Receipt Date: 20220906
  Transmission Date: 20221027
  Serious: Yes (Hospitalization, Other)
  Sender: FDA-Public Use
  Company Number: US-PFIZER INC-PV202200051229

PATIENT
  Age: 39 Year
  Sex: Male

DRUGS (2)
  1. DAPTOMYCIN [Suspect]
     Active Substance: DAPTOMYCIN
     Dosage: UNK, GIVEN THROUGH A PICC LINE
  2. MEROPENEM [Suspect]
     Active Substance: MEROPENEM
     Dosage: UNK, GIVEN THROUGH A PICC LINE

REACTIONS (1)
  - Septic shock [Unknown]
